FAERS Safety Report 9920297 (Version 2)
Quarter: 2014Q1

REPORT INFORMATION
  Report Type: Report from Study
  Country: US (occurrence: US)
  Receive Date: 20140224
  Receipt Date: 20140326
  Transmission Date: 20141002
  Serious: Yes (Hospitalization)
  Sender: FDA-Public Use
  Company Number: PHHO2014US002723

PATIENT
  Sex: Male

DRUGS (12)
  1. AFINITOR [Suspect]
     Indication: RENAL CELL CARCINOMA
     Dosage: 10 MG, QD
     Route: 048
     Dates: start: 20130905
  2. ZOLPIDEM [Concomitant]
     Indication: SLEEP DISORDER
     Dosage: 5 MG, QHS
     Dates: start: 20130501
  3. SINGULAIR [Concomitant]
     Indication: HYPERSENSITIVITY
     Dosage: UNK
     Dates: start: 20130611
  4. FLONASE [Concomitant]
     Indication: SEASONAL ALLERGY
     Dosage: 50 UG, 1 PUFF IN EACH NOSTRIL PRN
     Route: 055
     Dates: start: 20130611
  5. HYDROCORTISONE [Concomitant]
     Indication: RASH
     Dosage: UNK
     Route: 061
     Dates: start: 20130509
  6. HYDROCODONE/ACETAMINOPHEN          /00607101/ [Concomitant]
     Indication: PAIN
     Dosage: 1 DF, Q4H (7.5/325 MG Q4H PRN)
     Route: 048
     Dates: start: 20130613
  7. CHERATUSSIN [Concomitant]
     Indication: COUGH
     Dosage: 1 TSP, Q4-6 HRS PRN
     Route: 048
     Dates: start: 20130809
  8. APAP CODEINE [Concomitant]
     Indication: COUGH
     Dosage: 1 DF, Q6H (300-30 MG 1 TABLET Q 6 HRS PRN)
     Dates: start: 20130809
  9. REMERON [Concomitant]
     Indication: SLEEP DISORDER
     Dosage: 15 MG, QHS
     Route: 048
     Dates: start: 20130827
  10. LIDOCAINE [Concomitant]
     Indication: MUCOSAL INFLAMMATION
     Dosage: 2 % 5 ML SWISH + SPIT Q 4 HRS PRN
     Dates: start: 20130627
  11. LOMOTIL                            /00034001/ [Concomitant]
     Indication: DIARRHOEA
     Dosage: 2.5 MG, QID, 1 TAB
     Dates: start: 20140102
  12. BENZONATATE [Concomitant]
     Indication: COUGH
     Dosage: 100 MG, TID
     Dates: start: 20140206

REACTIONS (2)
  - Renal failure acute [Recovered/Resolved]
  - Angina pectoris [Unknown]
